FAERS Safety Report 6931190-4 (Version None)
Quarter: 2010Q3

REPORT INFORMATION
  Report Type: 
  Country: None (occurrence: None)
  Receive Date: 20100818
  Receipt Date: 20100804
  Transmission Date: 20110219
  Serious: Yes (Hospitalization)
  Sender: FDA-Public Use
  Company Number: BR-GENENTECH-305150

PATIENT
  Age: 46 Year
  Sex: Female

DRUGS (1)
  1. MABTHERA [Suspect]
     Indication: SJOGREN'S SYNDROME
     Dosage: UNK
     Route: 065
     Dates: start: 20100723, end: 20100723

REACTIONS (4)
  - OEDEMA PERIPHERAL [None]
  - PAIN IN EXTREMITY [None]
  - PURPURA [None]
  - PYREXIA [None]
